FAERS Safety Report 8283184-7 (Version None)
Quarter: 2012Q2

REPORT INFORMATION
  Report Type: 
  Country: None (occurrence: None)
  Receive Date: 20120413
  Receipt Date: 20120405
  Transmission Date: 20120825
  Serious: Yes (Hospitalization)
  Sender: FDA-Public Use
  Company Number: US-TEVA-331951USA

PATIENT
  Sex: Female
  Weight: 36.32 kg

DRUGS (1)
  1. PROAIR HFA [Suspect]
     Indication: ASTHMA
     Dosage: PRN
     Dates: start: 20120217, end: 20120301

REACTIONS (4)
  - NERVOUSNESS [None]
  - DYSPNOEA [None]
  - SPEECH DISORDER [None]
  - TREMOR [None]
